FAERS Safety Report 17951556 (Version 1)
Quarter: 2020Q2

REPORT INFORMATION
  Report Type: Spontaneous
  Country: US (occurrence: US)
  Receive Date: 20200626
  Receipt Date: 20200626
  Transmission Date: 20200714
  Serious: Yes (Other)
  Sender: FDA-Public Use
  Company Number: US-ROCHE-2628425

PATIENT
  Sex: Female

DRUGS (4)
  1. TUCATINIB [Concomitant]
     Active Substance: TUCATINIB
     Indication: BREAST CANCER FEMALE
     Route: 048
  2. HERCEPTIN [Suspect]
     Active Substance: TRASTUZUMAB
     Indication: BREAST CANCER FEMALE
     Route: 065
  3. XELODA [Suspect]
     Active Substance: CAPECITABINE
     Indication: BREAST CANCER FEMALE
     Route: 048
  4. TUCATINIB [Concomitant]
     Active Substance: TUCATINIB
     Route: 048

REACTIONS (9)
  - Fatigue [Unknown]
  - Tremor [Unknown]
  - Hemiparesis [Unknown]
  - Depression [Unknown]
  - Social problem [Unknown]
  - Muscular weakness [Unknown]
  - Malaise [Unknown]
  - Renal pain [Unknown]
  - Decreased appetite [Unknown]
